FAERS Safety Report 8771830 (Version 1)
Quarter: 2012Q4

REPORT INFORMATION
  Report Type: 
  Country: US (occurrence: US)
  Receive Date: 20120906
  Receipt Date: 20120906
  Transmission Date: 20130627
  Serious: Yes (Death)
  Sender: FDA-Public Use
  Company Number: US-BAXTER-2012BAX015964

PATIENT
  Age: 19 Year
  Sex: Male

DRUGS (5)
  1. NEXTERONE [Suspect]
     Indication: VENTRICULAR TACHYCARDIA
     Dosage: with an additional bolus of 150 mg
     Route: 040
  2. NEXTERONE [Suspect]
     Indication: DRUG USE FOR UNAPPROVED INDICATION
     Route: 040
  3. MAGNESIUM SULFATE [Suspect]
     Indication: TACHYCARDIA
     Route: 040
  4. MAGNESIUM SULFATE [Suspect]
     Route: 040
  5. DOBUTAMINE [Concomitant]
     Indication: BLOOD PRESSURE
     Dosage: 3 TO 12 UG/KG
     Route: 042

REACTIONS (1)
  - Drug ineffective [Fatal]
